FAERS Safety Report 25442496 (Version 3)
Quarter: 2025Q4

REPORT INFORMATION
  Report Type: Report from Study
  Country: EU (occurrence: EU)
  Receive Date: 20250617
  Receipt Date: 20251202
  Transmission Date: 20260118
  Serious: Yes (Hospitalization)
  Sender: ABBVIE
  Company Number: EU-ABBVIE-6322175

PATIENT
  Age: 39 Year
  Sex: Male
  Weight: 88 kg

DRUGS (3)
  1. SKYRIZI [Suspect]
     Active Substance: RISANKIZUMAB-RZAA
     Indication: Psoriasis
     Dosage: ON FIRST DAY OF WEEK
     Route: 058
     Dates: start: 20231123, end: 20240814
  2. PREDNISOLONE [Concomitant]
     Active Substance: PREDNISOLONE
     Indication: Product used for unknown indication
     Dates: start: 202403
  3. BETAMETHASONE [Concomitant]
     Active Substance: BETAMETHASONE
     Indication: Product used for unknown indication
     Dates: start: 20231123

REACTIONS (16)
  - Psoriasis [Recovered/Resolved]
  - Intertrigo [Recovered/Resolved]
  - Eczema [Recovered/Resolved]
  - Hypotension [Not Recovered/Not Resolved]
  - Erysipelas [Recovered/Resolved]
  - Pain [Unknown]
  - Burning sensation [Unknown]
  - Dermatitis [Unknown]
  - Skin lesion [Unknown]
  - Proteus infection [Unknown]
  - Enterococcal infection [Recovered/Resolved]
  - Staphylococcal infection [Recovered/Resolved]
  - Erythema [Unknown]
  - Candida infection [Unknown]
  - Hyperthermia [Unknown]
  - Therapeutic product effect incomplete [Unknown]

NARRATIVE: CASE EVENT DATE: 20240301
